FAERS Safety Report 7624649-8 (Version None)
Quarter: 2011Q3

REPORT INFORMATION
  Report Type: 
  Country: None (occurrence: None)
  Receive Date: 20110720
  Receipt Date: 20110713
  Transmission Date: 20111222
  Serious: Yes (Hospitalization)
  Sender: FDA-Public Use
  Company Number: US-ABBOTT-11P-163-0838693-00

PATIENT
  Sex: Female
  Weight: 100.33 kg

DRUGS (3)
  1. HUMIRA [Suspect]
     Route: 058
     Dates: start: 20110421
  2. CYCLOSPORINE [Concomitant]
     Indication: PSORIASIS
     Dates: start: 20110421
  3. HUMIRA [Suspect]
     Indication: PSORIASIS
     Route: 058
     Dates: start: 20100430, end: 20110330

REACTIONS (1)
  - HEPATIC CIRRHOSIS [None]
